FAERS Safety Report 7528675-9 (Version None)
Quarter: 2011Q2

REPORT INFORMATION
  Report Type: 
  Country: None (occurrence: None)
  Receive Date: 20110607
  Receipt Date: 20110527
  Transmission Date: 20111010
  Serious: Yes (Other)
  Sender: FDA-Public Use
  Company Number: US-SANOFI-AVENTIS-2011SA025889

PATIENT
  Age: 73 Year
  Sex: Male

DRUGS (3)
  1. NOVOLOG [Concomitant]
     Dosage: 3-5 UNITS TID WITH MEALS
     Route: 058
  2. LANTUS [Suspect]
     Indication: TYPE 2 DIABETES MELLITUS
     Dosage: DOSE:32 UNIT(S)
     Route: 058
     Dates: start: 20090101
  3. LANTUS [Suspect]
     Dosage: DOSE:40 UNIT(S)
     Route: 058

REACTIONS (4)
  - DIABETES MELLITUS INADEQUATE CONTROL [None]
  - CEREBROVASCULAR ACCIDENT [None]
  - BLOOD GLUCOSE DECREASED [None]
  - BLOOD GLUCOSE INCREASED [None]
